FAERS Safety Report 9120246 (Version 2)
Quarter: 2013Q2

REPORT INFORMATION
  Report Type: Report from Study
  Country: US (occurrence: US)
  Receive Date: 20130226
  Receipt Date: 20130402
  Transmission Date: 20140414
  Serious: No
  Sender: FDA-Public Use
  Company Number: US-VERTEX PHARMACEUTICALS INC.-2013-002517

PATIENT
  Age: 51 Year
  Sex: Male
  Weight: 100 kg

DRUGS (9)
  1. VX-950 (TELAPREVIR) [Suspect]
     Indication: HEPATITIS C
     Dosage: 750 MG, TID
     Route: 048
  2. PEGASYS [Suspect]
     Indication: HEPATITIS C
  3. RIBAVIRIN [Suspect]
     Indication: HEPATITIS C
     Dosage: 200 MG, UNK
  4. CELEXA [Concomitant]
     Dosage: 20 MG, UNK
  5. XANAX [Concomitant]
     Dosage: 0.5 MG, UNK
  6. RISPERIDONE [Concomitant]
     Dosage: 0.25 MG, UNK
  7. OMEPRAZOLE [Concomitant]
     Dosage: 10 MG, UNK
  8. TRAMADOL HCL [Concomitant]
     Dosage: 50 MG, UNK
  9. VITAMIN B COMPLEX [Concomitant]

REACTIONS (8)
  - Blood count abnormal [Unknown]
  - Influenza like illness [Unknown]
  - Depression [Unknown]
  - Arthralgia [Unknown]
  - Myalgia [Unknown]
  - Fatigue [Unknown]
  - Pruritus [Unknown]
  - Diarrhoea [Unknown]
